FAERS Safety Report 17982426 (Version 1)
Quarter: 2020Q3

REPORT INFORMATION
  Report Type: Spontaneous
  Country: ES (occurrence: ES)
  Receive Date: 20200706
  Receipt Date: 20200706
  Transmission Date: 20201103
  Serious: Yes (Life-Threatening)
  Sender: FDA-Public Use
  Company Number: ES-LEO PHARMA-330344

PATIENT
  Age: 64 Year
  Sex: Male

DRUGS (13)
  1. PICATO [Interacting]
     Active Substance: INGENOL MEBUTATE
     Dosage: 150 MICROGRAMS/GRAM GEL, 3 0.47G UNIT DOSE TUBES
     Route: 061
     Dates: start: 20181231, end: 20190102
  2. OMEPRAZOL (2141A) [Concomitant]
     Active Substance: OMEPRAZOLE
     Indication: PRODUCT USED FOR UNKNOWN INDICATION
     Route: 048
     Dates: start: 20170419
  3. PRAVASTATINA (7192A) [Concomitant]
     Active Substance: PRAVASTATIN SODIUM
     Indication: DYSLIPIDAEMIA
     Route: 048
     Dates: start: 20170419
  4. FOLIC ACID (149A) [Concomitant]
     Indication: HEART TRANSPLANT
     Route: 048
     Dates: start: 20170419
  5. MAGNESIUM [Concomitant]
     Active Substance: MAGNESIUM
     Indication: PRODUCT USED FOR UNKNOWN INDICATION
     Dosage: EVERY 24 HOURS
  6. MUPIROCINA (2317A) [Interacting]
     Active Substance: MUPIROCIN
     Indication: ACTINIC KERATOSIS
     Route: 061
     Dates: start: 20181231
  7. PREDNISONA (886A) [Interacting]
     Active Substance: PREDNISONE
     Indication: HEART TRANSPLANT
     Route: 048
     Dates: start: 20170419
  8. METFORMIN [Concomitant]
     Active Substance: METFORMIN HYDROCHLORIDE
     Indication: DIABETES MELLITUS
  9. ORFIDAL [Concomitant]
     Active Substance: LORAZEPAM
     Indication: PRODUCT USED FOR UNKNOWN INDICATION
  10. PICATO [Suspect]
     Active Substance: INGENOL MEBUTATE
     Indication: ACTINIC KERATOSIS
     Dosage: 150 MICROGRAMS/GRAM GEL, 3 0.47G UNIT DOSE TUBES
     Route: 061
     Dates: start: 20190403, end: 20190405
  11. PARACETAMOL (12A) [Concomitant]
     Active Substance: ACETAMINOPHEN
     Indication: PRODUCT USED FOR UNKNOWN INDICATION
     Route: 048
     Dates: start: 20170419
  12. MICOFENOLATO DE MOFETILO (7330LM) [Interacting]
     Active Substance: MYCOPHENOLATE MOFETIL
     Indication: HEART TRANSPLANT
     Route: 048
     Dates: start: 20170419
  13. ADVAGRAF [Interacting]
     Active Substance: TACROLIMUS
     Indication: HEART TRANSPLANT
     Route: 048
     Dates: start: 20170419

REACTIONS (2)
  - Inappropriate schedule of product administration [Unknown]
  - Squamous cell carcinoma of skin [Not Recovered/Not Resolved]

NARRATIVE: CASE EVENT DATE: 201906
